FAERS Safety Report 8792860 (Version 1)
Quarter: 2012Q4

REPORT INFORMATION
  Report Type: Report from Study
  Country: FR (occurrence: FR)
  Receive Date: 20120918
  Receipt Date: 20120918
  Transmission Date: 20130627
  Serious: Yes (Hospitalization)
  Sender: FDA-Public Use
  Company Number: FR-009507513-1209FRA004661

PATIENT

DRUGS (9)
  1. DEXAMETHASONE [Suspect]
     Indication: NON-HODGKIN^S LYMPHOMA
     Dosage: 40 mg, qd
     Route: 048
     Dates: start: 20120705
  2. INOTUZUMAB OZOGAMICIN [Suspect]
     Indication: NON-HODGKIN^S LYMPHOMA
     Dosage: 1.2 mg, UNK
     Route: 042
     Dates: start: 20120706
  3. GEMCITABINE [Suspect]
     Indication: NON-HODGKIN^S LYMPHOMA
     Dosage: 760 mg, UNK
     Route: 042
     Dates: start: 20120705
  4. CISPLATIN [Suspect]
     Indication: NON-HODGKIN^S LYMPHOMA
     Dosage: 76 mg, UNK
     Route: 042
     Dates: start: 20120705
  5. RITUXIMAB [Suspect]
     Indication: NON-HODGKIN^S LYMPHOMA
     Dosage: 570 mg, UNK
     Route: 042
     Dates: start: 20120705
  6. RAFTON [Concomitant]
     Indication: COLITIS MICROSCOPIC
     Dosage: UNK
     Dates: start: 201204, end: 20120703
  7. PREDNISONE [Concomitant]
     Dosage: UNK
     Dates: start: 20120628, end: 20120704
  8. ZYLORIC [Concomitant]
     Dosage: UNK
     Dates: start: 20120707, end: 20120707
  9. MOPRAL (OMEPRAZOLE) [Concomitant]
     Dosage: UNK
     Dates: start: 20120707, end: 20120707

REACTIONS (1)
  - Tumour lysis syndrome [Recovered/Resolved]
